FAERS Safety Report 5139375-7 (Version None)
Quarter: 2006Q4

REPORT INFORMATION
  Report Type: 
  Country: None (occurrence: None)
  Receive Date: 20061030
  Receipt Date: 20061026
  Transmission Date: 20070319
  Serious: Yes (Hospitalization)
  Sender: FDA-Public Use
  Company Number: FR-BRISTOL-MYERS SQUIBB COMPANY-13557202

PATIENT
  Age: 91 Year
  Sex: Female

DRUGS (3)
  1. APROVEL [Suspect]
     Route: 048
     Dates: start: 20060921, end: 20061002
  2. ALDACTONE [Suspect]
     Route: 048
     Dates: end: 20060926
  3. ISOPTIN [Concomitant]

REACTIONS (1)
  - HYPERKALAEMIA [None]
